FAERS Safety Report 5465177-8 (Version None)
Quarter: 2007Q3

REPORT INFORMATION
  Report Type: 
  Country: None (occurrence: None)
  Receive Date: 20070919
  Receipt Date: 20070905
  Transmission Date: 20080115
  Serious: Yes (Death)
  Sender: FDA-Public Use
  Company Number: 161123ISR

PATIENT
  Age: 92 Year
  Sex: Female

DRUGS (4)
  1. TICLOPIDINE HCL [Suspect]
     Indication: CEREBRAL ISCHAEMIA
     Dosage: 250 MG (250 MG, 1 IN 1 D)  ORAL
     Route: 048
     Dates: start: 20010101, end: 20070723
  2. ORUDIS [Suspect]
     Indication: OSTEOARTHRITIS
     Dosage: 200 MG, AS REQUIRED, ORAL
     Route: 048
     Dates: start: 19990101, end: 20070723
  3. NORVASC [Concomitant]
  4. RAMIPRIL [Concomitant]

REACTIONS (1)
  - GASTRIC HAEMORRHAGE [None]
